FAERS Safety Report 8588021-9 (Version None)
Quarter: 2012Q3

REPORT INFORMATION
  Report Type: 
  Country: None (occurrence: None)
  Receive Date: 20120813
  Receipt Date: 20120730
  Transmission Date: 20120928
  Serious: Yes (Death, Other)
  Sender: FDA-Public Use
  Company Number: US-RANBAXY-2011US-50084

PATIENT
  Age: 26 Year
  Sex: Female

DRUGS (6)
  1. COMBIVIR [Suspect]
     Indication: ANTIRETROVIRAL THERAPY
     Dosage: UNK
     Route: 048
     Dates: start: 20110421, end: 20110915
  2. PREZISTA [Suspect]
     Indication: ANTIRETROVIRAL THERAPY
     Dosage: 800MG/DAY
     Route: 048
     Dates: start: 20110428
  3. KALETRA [Suspect]
     Indication: ANTIRETROVIRAL THERAPY
     Dosage: UNK
     Route: 048
     Dates: start: 20110421, end: 20110428
  4. NORVIR [Suspect]
     Indication: ANTIRETROVIRAL THERAPY
     Dosage: 200MG/DAY
     Route: 048
     Dates: start: 20110428, end: 20110510
  5. NORVIR [Suspect]
     Dosage: 100 MG/DAY
     Route: 048
     Dates: start: 20110511
  6. ZIDOVUDINE [Suspect]
     Indication: ANTIRETROVIRAL THERAPY
     Dosage: 2.0 MG/DAY
     Route: 065
     Dates: start: 20110915, end: 20110915

REACTIONS (3)
  - MATERNAL EXPOSURE DURING PREGNANCY [None]
  - CONGENITAL ANOMALY IN OFFSPRING [None]
  - PREMATURE LABOUR [None]
